FAERS Safety Report 16483397 (Version 1)
Quarter: 2019Q2

REPORT INFORMATION
  Report Type: Spontaneous
  Country: US (occurrence: US)
  Receive Date: 20190515
  Receipt Date: 20190515
  Transmission Date: 20190711
  Serious: Yes (Other)
  Sender: FDA-Public Use
  Company Number: None

PATIENT

DRUGS (1)
  1. GAVILYTE G [Suspect]
     Active Substance: POLYETHYLENE GLYCOL 3350\POTASSIUM CHLORIDE\SODIUM BICARBONATE\SODIUM CHLORIDE\SODIUM SULFATE ANHYDROUS
     Indication: COLONOSCOPY
     Dosage: POWDERED FORM ADD SMALL AMT OF LEMON ADDED WATER ?5:00PM 1/2 BOTTLE DRINK UNTIL I DRANK 1/2 BOTTLE ?2ND 1:30 COULD ONLY DRINK 5 CUPS VOMITED ??1ST TIME 4-5 HOURS   2ND TIME 2-3 HOURS
     Route: 048
     Dates: start: 20190501, end: 20190502

REACTIONS (5)
  - Nasopharyngitis [None]
  - Vomiting [None]
  - Rhinorrhoea [None]
  - Head discomfort [None]
  - Middle ear effusion [None]

NARRATIVE: CASE EVENT DATE: 20190501
